FAERS Safety Report 9637371 (Version 1)
Quarter: 2013Q4

REPORT INFORMATION
  Report Type: Report from Study
  Country: CA (occurrence: CA)
  Receive Date: 20131022
  Receipt Date: 20131022
  Transmission Date: 20140711
  Serious: Yes (Other)
  Sender: FDA-Public Use
  Company Number: PHHY2013CA118327

PATIENT
  Age: 17 Year
  Sex: Female

DRUGS (5)
  1. TEGRETOL [Suspect]
     Indication: GRAND MAL CONVULSION
     Dosage: UNK UKN, UNK
     Dates: start: 1995
  2. LAMOTRIGINE [Concomitant]
     Dosage: UNK UKN, UNK
     Dates: start: 1995
  3. LOSARTAN [Concomitant]
     Dosage: UNK UKN, UNK
  4. PROZAC [Concomitant]
     Dosage: UNK UKN, UNK
  5. QUETIAPINE [Concomitant]
     Dosage: UNK UKN, UNK

REACTIONS (6)
  - Blood pressure increased [Unknown]
  - Renal disorder [Unknown]
  - Angiomyolipoma [Unknown]
  - Hallucination [Unknown]
  - Depression [Unknown]
  - Suicidal ideation [Unknown]
